FAERS Safety Report 6549559-9 (Version None)
Quarter: 2010Q1

REPORT INFORMATION
  Report Type: 
  Country: None (occurrence: None)
  Receive Date: 20100125
  Receipt Date: 20100119
  Transmission Date: 20100710
  Serious: Yes (Life-Threatening, Hospitalization, Other)
  Sender: FDA-Public Use
  Company Number: DE-ASTRAZENECA-2009SE12263

PATIENT
  Age: 25108 Day
  Sex: Female
  Weight: 74 kg

DRUGS (1)
  1. FASLODEX [Suspect]
     Route: 030
     Dates: start: 20090728

REACTIONS (1)
  - ANAPHYLACTIC REACTION [None]
